FAERS Safety Report 5305188-6 (Version None)
Quarter: 2007Q2

REPORT INFORMATION
  Report Type: 
  Country: None (occurrence: None)
  Receive Date: 20070416
  Receipt Date: 20070405
  Transmission Date: 20071010
  Serious: Yes (Other)
  Sender: FDA-Public Use
  Company Number: 2005-12-0141

PATIENT
  Age: 53 Year
  Sex: Male

DRUGS (9)
  1. PEG-INTRON [Suspect]
     Indication: HEPATITIS C
     Dosage: SC
     Route: 058
     Dates: start: 20031001, end: 20040601
  2. PEG-INTRON [Suspect]
     Indication: HEPATITIS C
     Dosage: SC
     Route: 058
     Dates: start: 20060101, end: 20060501
  3. RIBAVIRIN [Suspect]
     Indication: HEPATITIS C
     Dosage: PO
     Route: 048
     Dates: start: 20031001, end: 20040601
  4. PREDNISONE (CON.) [Concomitant]
  5. LABETALOL (CON.) [Concomitant]
  6. FUROSEMIDE (CON.) [Concomitant]
  7. AMLODIPINE (CON.) [Concomitant]
  8. PANTOPRAZOLE SODIUM (CON.) [Concomitant]
  9. HYDROCHLOROTHIAZIDE (CON.) [Concomitant]

REACTIONS (7)
  - ACTIVATED PARTIAL THROMBOPLASTIN TIME PROLONGED [None]
  - CONJUNCTIVAL HAEMORRHAGE [None]
  - CONTUSION [None]
  - ECCHYMOSIS [None]
  - HAEMATOCRIT DECREASED [None]
  - HAEMATOMA [None]
  - PURPURA [None]
